FAERS Safety Report 9052506 (Version 2)
Quarter: 2013Q1

REPORT INFORMATION
  Report Type: Spontaneous
  Country: FR (occurrence: FR)
  Receive Date: 20130207
  Receipt Date: 20130313
  Transmission Date: 20140127
  Serious: Yes (Death)
  Sender: FDA-Public Use
  Company Number: PHHY2013FR011018

PATIENT
  Age: 44 Year
  Sex: Male

DRUGS (3)
  1. VOLTARENE [Suspect]
     Indication: PROCTALGIA
     Dosage: 50 MG, TID
     Route: 048
     Dates: start: 20121129
  2. ENBREL [Suspect]
     Dosage: 1 INJECTION PER WEEK
  3. VAXIGRIP [Suspect]
     Indication: INFLUENZA IMMUNISATION
     Dosage: UNK UKN, ONCE
     Dates: start: 20121124

REACTIONS (4)
  - Shock [Fatal]
  - Hypotension [Fatal]
  - Sepsis [Fatal]
  - Pyrexia [Fatal]
